FAERS Safety Report 9349134 (Version 2)
Quarter: 2013Q3

REPORT INFORMATION
  Report Type: Spontaneous
  Country: FR (occurrence: FR)
  Receive Date: 20130614
  Receipt Date: 20130920
  Transmission Date: 20140515
  Serious: Yes (Death)
  Sender: FDA-Public Use
  Company Number: FR-TEVA-411927ISR

PATIENT
  Age: 87 Year
  Sex: Female

DRUGS (1)
  1. FUROSEMIDE [Suspect]
     Route: 048
     Dates: start: 201305

REACTIONS (2)
  - Pulmonary oedema [Fatal]
  - Somnolence [Unknown]
